FAERS Safety Report 5629426-5 (Version None)
Quarter: 2008Q1

REPORT INFORMATION
  Report Type: 
  Country: None (occurrence: None)
  Receive Date: 20080215
  Receipt Date: 20080215
  Transmission Date: 20080703
  Serious: Yes (Hospitalization)
  Sender: FDA-Public Use
  Company Number: None

PATIENT
  Sex: Female
  Weight: 110.5 kg

DRUGS (25)
  1. CETUXIMAB [Suspect]
     Indication: BREAST CANCER METASTATIC
     Dosage: 250MG/M2 WEEKLY
     Route: 042
     Dates: start: 20070726, end: 20080103
  2. CARBOPLATIN [Suspect]
     Dosage: AUC 1.5 WKLY X 3 +1 WK OFF
     Route: 042
     Dates: start: 20070726, end: 20080103
  3. TRAZODONE HYDROCHLORIDE [Concomitant]
  4. VESICARE [Concomitant]
  5. WELLBUTRIN SR [Concomitant]
  6. LEVAQUIN [Concomitant]
  7. CLINDAMYCIN HCL [Concomitant]
  8. MAGNESIUM [Concomitant]
  9. 5% SODIUM SULFACETIMIDE [Concomitant]
  10. CLINDAMYCIN HCL [Concomitant]
  11. U-KERA [Concomitant]
  12. DOXYCYCLINE [Concomitant]
  13. LAXATIVE [Concomitant]
  14. EQUATE STOOL SOFTENER [Concomitant]
  15. BENADRYL CREAM [Concomitant]
  16. ZOFRAN [Concomitant]
  17. COMPAZINE [Concomitant]
  18. DARVON [Concomitant]
  19. CARAFATE [Concomitant]
  20. AMBIEN CR [Concomitant]
  21. LEXAPRO [Concomitant]
  22. LYRICA [Concomitant]
  23. METADATE CD [Concomitant]
  24. PROTONIX [Concomitant]
  25. LISINOPRIL [Concomitant]

REACTIONS (2)
  - PARONYCHIA [None]
  - STAPHYLOCOCCAL INFECTION [None]
